FAERS Safety Report 18797795 (Version 3)
Quarter: 2021Q1

REPORT INFORMATION
  Report Type: Spontaneous
  Country: US (occurrence: US)
  Receive Date: 20210128
  Receipt Date: 20210203
  Transmission Date: 20210419
  Serious: Yes (Hospitalization, Other)
  Sender: FDA-Public Use
  Company Number: US-GLAXOSMITHKLINE-US2021AMR016880

PATIENT
  Sex: Female

DRUGS (2)
  1. COVID?19 VACCINE NOS. [Suspect]
     Active Substance: COVID-19 VACCINE NOS
     Indication: COVID-19 PROPHYLAXIS
     Dosage: UNK
  2. ZEJULA [Suspect]
     Active Substance: NIRAPARIB
     Indication: OVARIAN CANCER
     Dosage: 200 MG, QD
     Dates: start: 20210114, end: 20210129

REACTIONS (18)
  - Dysstasia [Unknown]
  - Feeling cold [Unknown]
  - Feeding disorder [Unknown]
  - Drug intolerance [Recovering/Resolving]
  - Decreased appetite [Unknown]
  - Retching [Unknown]
  - Dyspepsia [Unknown]
  - Hot flush [Unknown]
  - Pneumonia [Unknown]
  - Pain [Unknown]
  - Vomiting [Unknown]
  - Back pain [Unknown]
  - Constipation [Unknown]
  - Fatigue [Recovering/Resolving]
  - Peripheral swelling [Unknown]
  - Pain in extremity [Unknown]
  - Dry mouth [Unknown]
  - Adverse drug reaction [Recovered/Resolved]
